FAERS Safety Report 9917515 (Version 1)
Quarter: 2014Q1

REPORT INFORMATION
  Report Type: Report from Study
  Country: CA (occurrence: CA)
  Receive Date: 20140221
  Receipt Date: 20140221
  Transmission Date: 20141002
  Serious: Yes (Hospitalization)
  Sender: FDA-Public Use
  Company Number: CA-JNJFOC-20140211704

PATIENT
  Age: 29 Year
  Sex: Male
  Weight: 75 kg

DRUGS (6)
  1. REMICADE [Suspect]
     Indication: CROHN^S DISEASE
     Dosage: WEEK 6
     Route: 042
  2. REMICADE [Suspect]
     Indication: CROHN^S DISEASE
     Dosage: WEEK 2
     Route: 042
  3. REMICADE [Suspect]
     Indication: CROHN^S DISEASE
     Dosage: WEEK 0
     Route: 042
     Dates: start: 20131108
  4. ACYCLOVIR [Concomitant]
     Route: 065
  5. CEFAZOLIN [Concomitant]
     Route: 065
  6. PREDNISONE [Concomitant]
     Route: 065

REACTIONS (3)
  - Autoimmune disorder [Unknown]
  - Pityriasis lichenoides et varioliformis acuta [Unknown]
  - Colitis [Unknown]
